FAERS Safety Report 25166227 (Version 2)
Quarter: 2025Q2

REPORT INFORMATION
  Report Type: Spontaneous
  Country: FR (occurrence: FR)
  Receive Date: 20250407
  Receipt Date: 20250430
  Transmission Date: 20250717
  Serious: Yes (Other)
  Sender: TEVA
  Company Number: None

PATIENT
  Age: 80 Year
  Sex: Male
  Weight: 66 kg

DRUGS (4)
  1. SULFAMETHOXAZOLE\TRIMETHOPRIM [Suspect]
     Active Substance: SULFAMETHOXAZOLE\TRIMETHOPRIM
     Indication: Lung disorder
     Dosage: COTRIMOXAZOLE TEVA 800 MG/160 MG, 3-3-3
     Route: 048
     Dates: start: 20250307, end: 20250313
  2. FUROSEMIDE KALCEKS [Concomitant]
     Indication: Oedema peripheral
     Dosage: 20 MG/2 ML
     Route: 042
     Dates: start: 20250228, end: 20250319
  3. LANSOPRAZOLE [Suspect]
     Active Substance: LANSOPRAZOLE
     Indication: Adrenocortical steroid therapy
     Dosage: LANSOPRAZOLE VIATRIS
     Route: 048
     Dates: start: 20250228, end: 20250319
  4. MEROPENEM [Suspect]
     Active Substance: MEROPENEM
     Indication: Lung disorder
     Dosage: ACS DOBFAR 2-2-2
     Route: 042
     Dates: start: 20250307, end: 20250313

REACTIONS (1)
  - Thrombocytopenia [Recovered/Resolved]

NARRATIVE: CASE EVENT DATE: 20250313
